FAERS Safety Report 21040439 (Version 2)
Quarter: 2023Q1

REPORT INFORMATION
  Report Type: Spontaneous
  Country: US (occurrence: US)
  Receive Date: 20220704
  Receipt Date: 20230317
  Transmission Date: 20230418
  Serious: No
  Sender: FDA-Public Use
  Company Number: US-SA-SAC20220629000190

PATIENT
  Sex: Male
  Weight: 209 kg

DRUGS (11)
  1. DUPIXENT [Suspect]
     Active Substance: DUPILUMAB
     Indication: Dermatitis atopic
     Dosage: 300 MG, QOW
     Route: 058
     Dates: start: 202203
  2. DUPIXENT [Suspect]
     Active Substance: DUPILUMAB
     Indication: Dermatitis allergic
  3. BETAMETHASONE VALERATE [Concomitant]
     Active Substance: BETAMETHASONE VALERATE
  4. CLARITHROMYCIN [Concomitant]
     Active Substance: CLARITHROMYCIN
  5. EUCRISA [Concomitant]
     Active Substance: CRISABOROLE
  6. FLONASE ALLERGY RELIEF [Concomitant]
     Active Substance: FLUTICASONE PROPIONATE
  7. TACROLIMUS [Concomitant]
     Active Substance: TACROLIMUS
  8. HYDROXYZINE [Concomitant]
     Active Substance: HYDROXYZINE HYDROCHLORIDE
  9. PREDNISONE [Concomitant]
     Active Substance: PREDNISONE
  10. EPINEPHRINE [Concomitant]
     Active Substance: EPINEPHRINE
  11. LORATADINE [Concomitant]
     Active Substance: LORATADINE

REACTIONS (9)
  - SARS-CoV-2 test positive [Not Recovered/Not Resolved]
  - Malaise [Not Recovered/Not Resolved]
  - Skin mass [Unknown]
  - Discomfort [Unknown]
  - Pain [Unknown]
  - Rash [Unknown]
  - Injection site swelling [Unknown]
  - Dermatitis atopic [Not Recovered/Not Resolved]
  - Inappropriate schedule of product administration [Unknown]

NARRATIVE: CASE EVENT DATE: 20220501
